FAERS Safety Report 8394513-8 (Version None)
Quarter: 2012Q2

REPORT INFORMATION
  Report Type: 
  Country: None (occurrence: None)
  Receive Date: 20120530
  Receipt Date: 20120517
  Transmission Date: 20120825
  Serious: Yes (Hospitalization)
  Sender: FDA-Public Use
  Company Number: CA-ELI_LILLY_AND_COMPANY-CA201203008452

PATIENT
  Age: 78 Year
  Sex: Female

DRUGS (13)
  1. SINEMET [Concomitant]
  2. FORTEO [Suspect]
     Indication: OSTEOPOROSIS
     Dosage: 20 UG, QD
     Dates: start: 20110704
  3. AVAPRO [Concomitant]
     Dosage: 150 MG, UNK
  4. FORTEO [Suspect]
     Dosage: 20 UG, QD
     Dates: start: 20120121
  5. CALCIUM [Concomitant]
  6. IMOVANE [Concomitant]
  7. VITAMIN D [Concomitant]
  8. ADALAT [Concomitant]
  9. ESCITALOPRAM [Concomitant]
     Dosage: 10 MG, QD
  10. COLACE [Concomitant]
  11. FORTEO [Suspect]
     Dosage: 20 UG, QD
     Route: 058
  12. MULTI-VITAMIN [Concomitant]
  13. LAXATIVES [Concomitant]

REACTIONS (2)
  - DRUG DOSE OMISSION [None]
  - ADENOMA BENIGN [None]
